FAERS Safety Report 9801652 (Version 3)
Quarter: 2014Q1

REPORT INFORMATION
  Report Type: Report from Study
  Country: US (occurrence: US)
  Receive Date: 20140107
  Receipt Date: 20140226
  Transmission Date: 20141002
  Serious: Yes (Hospitalization)
  Sender: FDA-Public Use
  Company Number: US-BRISTOL-MYERS SQUIBB COMPANY-19847383

PATIENT
  Age: 57 Year
  Sex: Female

DRUGS (7)
  1. NIVOLUMAB [Suspect]
     Indication: NON-SMALL CELL LUNG CANCER
     Dosage: CYCLE 4.
     Route: 042
     Dates: start: 20131004
  2. IPILIMUMAB [Suspect]
     Indication: NON-SMALL CELL LUNG CANCER
     Dosage: CYCLE 4.
     Route: 042
     Dates: start: 20131004
  3. SOLU-MEDROL [Concomitant]
     Route: 042
  4. CITRACAL + D [Concomitant]
     Route: 048
  5. VITAMIN C [Concomitant]
     Route: 048
  6. MULTIVITAMIN [Concomitant]
     Route: 048
  7. VITAMIN B COMPLEX + C [Concomitant]
     Route: 048

REACTIONS (2)
  - Hypophysitis [Recovered/Resolved]
  - Adrenal insufficiency [Unknown]
